FAERS Safety Report 5909608-5 (Version None)
Quarter: 2008Q4

REPORT INFORMATION
  Report Type: 
  Country: None (occurrence: None)
  Receive Date: 20081001
  Receipt Date: 20080924
  Transmission Date: 20090506
  Serious: Yes (Death, Other)
  Sender: FDA-Public Use
  Company Number: GXKR2008CH07973

PATIENT

DRUGS (1)
  1. ECOFENAC CR (NGX) (DICLOFENAC) UNKNOWN, 75MG [Suspect]
     Dosage: TRANSPLACENTAL
     Route: 064

REACTIONS (6)
  - AMNIOCENTESIS ABNORMAL [None]
  - INFLAMMATION [None]
  - INTRA-UTERINE DEATH [None]
  - MATERNAL DRUGS AFFECTING FOETUS [None]
  - PLACENTAL DISORDER [None]
  - PLACENTAL INFARCTION [None]
